FAERS Safety Report 15975368 (Version 2)
Quarter: 2019Q1

REPORT INFORMATION
  Report Type: Spontaneous
  Country: US (occurrence: US)
  Receive Date: 20190218
  Receipt Date: 20190310
  Transmission Date: 20190418
  Serious: No
  Sender: FDA-Public Use
  Company Number: US-JNJFOC-20190200960

PATIENT
  Age: 66 Year
  Sex: Female

DRUGS (2)
  1. METFORMIN [Concomitant]
     Active Substance: METFORMIN HYDROCHLORIDE
     Indication: DIABETES MELLITUS
     Route: 065
  2. TYLENOL EXTRA STRENGTH [Suspect]
     Active Substance: ACETAMINOPHEN
     Indication: BACK PAIN
     Route: 048

REACTIONS (2)
  - Incorrect dose administered [Unknown]
  - Somnolence [Recovered/Resolved]

NARRATIVE: CASE EVENT DATE: 20190129
